FAERS Safety Report 23638015 (Version 1)
Quarter: 2024Q1

REPORT INFORMATION
  Report Type: Report from Study
  Country: US (occurrence: None)
  Receive Date: 20240315
  Receipt Date: 20240315
  Transmission Date: 20240409
  Serious: Yes (Other)
  Sender: FDA-Public Use
  Company Number: 2024A058832

PATIENT
  Sex: Female

DRUGS (2)
  1. TAGRISSO [Suspect]
     Active Substance: OSIMERTINIB
     Indication: Non-small cell lung cancer
     Route: 048
     Dates: start: 20201025
  2. GAVRETO [Interacting]
     Active Substance: PRALSETINIB

REACTIONS (3)
  - Gene mutation identification test positive [Unknown]
  - Squamous cell carcinoma of lung [Unknown]
  - Potentiating drug interaction [Unknown]
